FAERS Safety Report 17636422 (Version 1)
Quarter: 2020Q2

REPORT INFORMATION
  Report Type: Spontaneous
  Country: US (occurrence: US)
  Receive Date: 20200407
  Receipt Date: 20200407
  Transmission Date: 20200713
  Serious: No
  Sender: FDA-Public Use
  Company Number: US-MYLANLABS-2020M1028604

PATIENT
  Sex: Male
  Weight: 82 kg

DRUGS (5)
  1. LEVODOPA [Suspect]
     Active Substance: LEVODOPA
     Dosage: PRN
     Route: 055
  2. LISINOPRIL. [Concomitant]
     Active Substance: LISINOPRIL
     Dosage: UNK
  3. LEVODOPA [Suspect]
     Active Substance: LEVODOPA
     Indication: PARKINSON^S DISEASE
     Dosage: PRN
     Route: 055
     Dates: start: 202001
  4. CARBIDOPA/LEVODOPA [Suspect]
     Active Substance: CARBIDOPA\LEVODOPA
     Indication: PARKINSON^S DISEASE
     Dosage: UNK
     Route: 065
  5. AMANTADINE. [Concomitant]
     Active Substance: AMANTADINE HYDROCHLORIDE
     Dosage: UNK

REACTIONS (4)
  - Product residue present [Unknown]
  - Off label use [Unknown]
  - Drug intolerance [Unknown]
  - Functional gastrointestinal disorder [Unknown]
